FAERS Safety Report 25850193 (Version 1)
Quarter: 2025Q3

REPORT INFORMATION
  Report Type: Spontaneous
  Country: US (occurrence: US)
  Receive Date: 20250926
  Receipt Date: 20250926
  Transmission Date: 20251020
  Serious: No
  Sender: GILEAD
  Company Number: US-GILEAD-2025-0729527

PATIENT
  Sex: Female

DRUGS (2)
  1. LIVDELZI [Suspect]
     Active Substance: SELADELPAR LYSINE
     Indication: Product used for unknown indication
     Route: 065
  2. URSODIOL [Suspect]
     Active Substance: URSODIOL
     Indication: Product used for unknown indication
     Route: 065

REACTIONS (2)
  - Abdominal distension [Unknown]
  - Blood alkaline phosphatase increased [Unknown]
